FAERS Safety Report 6341317-3 (Version None)
Quarter: 2009Q3

REPORT INFORMATION
  Report Type: 
  Country: None (occurrence: None)
  Receive Date: 20090904
  Receipt Date: 20090826
  Transmission Date: 20100115
  Serious: Yes (Hospitalization)
  Sender: FDA-Public Use
  Company Number: US-ELI_LILLY_AND_COMPANY-US200809001330

PATIENT
  Age: 64 Year
  Sex: Female

DRUGS (12)
  1. BYETTA [Suspect]
     Dosage: 5 UG, 2/D
     Route: 058
     Dates: start: 20080101, end: 20080101
  2. METFORMIN HCL [Concomitant]
     Dosage: 1000 MG, 2/D
     Route: 048
  3. GLIPIZIDE [Concomitant]
     Dosage: 20 MG, 2/D
     Route: 048
  4. LOVASTATIN [Concomitant]
     Dosage: 40 MG, DAILY (1/D)
     Route: 048
  5. LISINOPRIL [Concomitant]
     Dosage: 10 MG, DAILY (1/D)
     Route: 048
  6. FUROSEMIDE [Concomitant]
     Dosage: 40 MG, DAILY (1/D)
     Route: 048
  7. SERTRALINE HCL [Concomitant]
     Dosage: 50 MG, DAILY (1/D)
     Route: 048
  8. ASPIRIN                                 /SCH/ [Concomitant]
     Dosage: 325 MG, DAILY (1/D)
     Route: 048
  9. CALCIUM CARBONATE [Concomitant]
     Dosage: 1250 MG, DAILY (1/D)
     Route: 048
  10. PANTOPRAZOLE SODIUM [Concomitant]
     Dosage: 40 MG, DAILY (1/D)
     Route: 048
  11. PANTOPRAZOLE SODIUM [Concomitant]
     Route: 042
  12. MULTIVITAMIN                       /00831701/ [Concomitant]
     Dosage: UNK, DAILY (1/D)
     Route: 048

REACTIONS (2)
  - PANCREATITIS ACUTE [None]
  - WEIGHT DECREASED [None]
